FAERS Safety Report 8932817 (Version 1)
Quarter: 2012Q4

REPORT INFORMATION
  Report Type: Spontaneous
  Country: US (occurrence: None)
  Receive Date: 20121127
  Receipt Date: 20121127
  Transmission Date: 20130627
  Serious: Yes (Life-Threatening)
  Sender: FDA-Public Use
  Company Number: None

PATIENT
  Age: 65 Year
  Sex: Male
  Weight: 76.2 kg

DRUGS (1)
  1. ANDROGEL [Suspect]
     Indication: TESTOSTERONE DECREASED
     Route: 061
     Dates: start: 20120112, end: 20121112

REACTIONS (1)
  - Hypertension [None]
